FAERS Safety Report 6317582-5 (Version None)
Quarter: 2009Q3

REPORT INFORMATION
  Report Type: 
  Country: None (occurrence: None)
  Receive Date: 20090821
  Receipt Date: 20090817
  Transmission Date: 20100115
  Serious: Yes (Death, Other)
  Sender: FDA-Public Use
  Company Number: BR-ROCHE-650843

PATIENT
  Sex: Female

DRUGS (3)
  1. RIVOTRIL [Suspect]
     Indication: DEPRESSION
     Dosage: DOSE: 10-15 TABLETS (OVERDOSE).
     Route: 048
     Dates: start: 20090803, end: 20090803
  2. RIVOTRIL [Suspect]
     Dosage: OTHER INDICATION: ANXIETY, THERAPY START DATE REPORTED AS: SOME MONTHS AGO.
     Route: 048
  3. RIVOTRIL [Suspect]
     Route: 048

REACTIONS (5)
  - MALAISE [None]
  - MYOCARDIAL INFARCTION [None]
  - OVERDOSE [None]
  - PULMONARY OEDEMA [None]
  - SOMNOLENCE [None]
